FAERS Safety Report 14019133 (Version 1)
Quarter: 2017Q3

REPORT INFORMATION
  Report Type: Spontaneous
  Country: US (occurrence: US)
  Receive Date: 20170928
  Receipt Date: 20170928
  Transmission Date: 20171128
  Serious: Yes (Hospitalization, Disabling)
  Sender: FDA-Public Use
  Company Number: None

PATIENT
  Age: 55 Year
  Sex: Male
  Weight: 90 kg

DRUGS (1)
  1. INTRON A [Suspect]
     Active Substance: INTERFERON ALFA-2B
     Indication: HEPATITIS C

REACTIONS (4)
  - Alopecia [None]
  - Lymphadenopathy [None]
  - Pancreatitis chronic [None]
  - Bronchitis chronic [None]

NARRATIVE: CASE EVENT DATE: 20010601
